FAERS Safety Report 5650721-8 (Version None)
Quarter: 2008Q1

REPORT INFORMATION
  Report Type: 
  Country: None (occurrence: None)
  Receive Date: 20080131
  Receipt Date: 20071105
  Transmission Date: 20080703
  Serious: No
  Sender: FDA-Public Use
  Company Number: US200711001397

PATIENT
  Age: 52 Year
  Sex: Male

DRUGS (3)
  1. BYETTA [Suspect]
     Indication: DRUG USE FOR UNKNOWN INDICATION
     Dosage: 5 UG, SUBCUTANEOUS; 10 UG, SUBCUTANEOUS
     Route: 058
     Dates: start: 20070101, end: 20070101
  2. BYETTA [Suspect]
     Indication: DRUG USE FOR UNKNOWN INDICATION
     Dosage: 5 UG, SUBCUTANEOUS; 10 UG, SUBCUTANEOUS
     Route: 058
     Dates: start: 20070101, end: 20070101
  3. EXENATIDE 10MCG PEN, DISPOSABLE DEVICE (EXENATIDE PEN (10MCG)) PEN,DIS [Concomitant]

REACTIONS (1)
  - GASTROENTERITIS VIRAL [None]
